APPROVED DRUG PRODUCT: TIZANIDINE HYDROCHLORIDE
Active Ingredient: TIZANIDINE HYDROCHLORIDE
Strength: EQ 4MG BASE
Dosage Form/Route: TABLET;ORAL
Application: A076371 | Product #002
Applicant: ANI PHARMACEUTICALS INC
Approved: Apr 9, 2003 | RLD: No | RS: No | Type: DISCN